FAERS Safety Report 6453295-7 (Version None)
Quarter: 2009Q4

REPORT INFORMATION
  Report Type: 
  Country: None (occurrence: None)
  Receive Date: 20091124
  Receipt Date: 20091114
  Transmission Date: 20100525
  Serious: Yes (Hospitalization, Other)
  Sender: FDA-Public Use
  Company Number: US-AMGEN-QUU374621

PATIENT
  Sex: Male

DRUGS (1)
  1. ENBREL [Suspect]
     Indication: ANKYLOSING SPONDYLITIS
     Route: 058

REACTIONS (7)
  - BLOOD GLUCOSE FLUCTUATION [None]
  - BREAST PAIN [None]
  - ENZYME ABNORMALITY [None]
  - INTESTINAL PERFORATION [None]
  - MALAISE [None]
  - MECHANICAL VENTILATION [None]
  - MULTI-ORGAN FAILURE [None]
